FAERS Safety Report 7421692-9 (Version None)
Quarter: 2011Q2

REPORT INFORMATION
  Report Type: 
  Country: None (occurrence: None)
  Receive Date: 20110418
  Receipt Date: 20110415
  Transmission Date: 20111010
  Serious: Yes (Other)
  Sender: FDA-Public Use
  Company Number: VE-PFIZER INC-2011083439

PATIENT
  Age: 80 Year
  Sex: Female

DRUGS (2)
  1. FLURAZEPAM [Concomitant]
     Indication: INSOMNIA
     Dosage: 15 MG, 2X/DAY
     Route: 048
  2. LIPITOR [Suspect]
     Indication: HYPERCHOLESTEROLAEMIA
     Dosage: 40 MG, 1X/DAY
     Route: 048

REACTIONS (2)
  - HUMERUS FRACTURE [None]
  - FALL [None]
